FAERS Safety Report 5869312-9 (Version None)
Quarter: 2008Q3

REPORT INFORMATION
  Report Type: 
  Country: None (occurrence: None)
  Receive Date: 20080903
  Receipt Date: 20080902
  Transmission Date: 20090109
  Serious: Yes (Death)
  Sender: FDA-Public Use
  Company Number: US-GILEAD-2008-0017968

PATIENT
  Sex: Female

DRUGS (3)
  1. LETAIRIS [Suspect]
     Indication: PULMONARY HYPERTENSION
     Dates: end: 20080601
  2. VENTAVIS [Concomitant]
     Indication: PULMONARY HYPERTENSION
     Route: 055
     Dates: start: 20080220, end: 20080701
  3. CALCIUM CHANNEL BLOCKER [Concomitant]

REACTIONS (2)
  - CARDIAC ARREST [None]
  - LIVER FUNCTION TEST ABNORMAL [None]
